FAERS Safety Report 25289898 (Version 1)
Quarter: 2025Q2

REPORT INFORMATION
  Report Type: Spontaneous
  Country: JP (occurrence: JP)
  Receive Date: 20250509
  Receipt Date: 20250509
  Transmission Date: 20250717
  Serious: Yes (Death, Hospitalization)
  Sender: EISAI
  Company Number: JP-Eisai-202411664_LEN_P_1

PATIENT
  Age: 79 Year
  Sex: Male
  Weight: 51 kg

DRUGS (9)
  1. LENVATINIB [Suspect]
     Active Substance: LENVATINIB
     Indication: Anaplastic thyroid cancer
     Route: 048
     Dates: start: 20240312, end: 20240408
  2. LENVATINIB [Suspect]
     Active Substance: LENVATINIB
     Route: 048
     Dates: start: 20240409, end: 20240411
  3. LENVATINIB [Suspect]
     Active Substance: LENVATINIB
     Route: 048
     Dates: start: 20240430
  4. DISTIGMINE BROMIDE [Concomitant]
     Active Substance: DISTIGMINE BROMIDE
     Indication: Dysuria
  5. TAMSULOSIN HYDROCHLORIDE [Concomitant]
     Active Substance: TAMSULOSIN HYDROCHLORIDE
     Indication: Dysuria
  6. DUTASTERIDE [Concomitant]
     Active Substance: DUTASTERIDE
     Indication: Benign prostatic hyperplasia
  7. ELDECALCITOL [Concomitant]
     Active Substance: ELDECALCITOL
     Indication: Osteoporosis
  8. DEPAS [Concomitant]
     Indication: Autonomic nervous system imbalance
  9. NIFEDIPINE [Concomitant]
     Active Substance: NIFEDIPINE
     Indication: Autonomic nervous system imbalance

REACTIONS (4)
  - Malignant neoplasm progression [Fatal]
  - Cerebral haemorrhage [Recovering/Resolving]
  - Thrombocytopenia [Recovered/Resolved]
  - Metastases to central nervous system [Not Recovered/Not Resolved]

NARRATIVE: CASE EVENT DATE: 20240409
